FAERS Safety Report 7986649-8 (Version None)
Quarter: 2011Q4

REPORT INFORMATION
  Report Type: 
  Country: None (occurrence: None)
  Receive Date: 20111216
  Receipt Date: 20110211
  Transmission Date: 20120403
  Serious: No
  Sender: FDA-Public Use
  Company Number: US-BRISTOL-MYERS SQUIBB COMPANY-15546690

PATIENT
  Sex: Female

DRUGS (3)
  1. ANTIDEPRESSANT [Concomitant]
  2. ABILIFY [Suspect]
     Indication: ANTIDEPRESSANT THERAPY
     Dosage: INCREASED TO 5MG
  3. LAMICTAL [Concomitant]

REACTIONS (1)
  - AKINESIA [None]
